FAERS Safety Report 16595177 (Version 5)
Quarter: 2019Q4

REPORT INFORMATION
  Report Type: Spontaneous
  Country: DE (occurrence: DE)
  Receive Date: 20190718
  Receipt Date: 20191018
  Transmission Date: 20200122
  Serious: Yes (Hospitalization)
  Sender: FDA-Public Use
  Company Number: DE-BIOGEN-2019BI00762765

PATIENT
  Sex: Male

DRUGS (2)
  1. SPIROPENT [Concomitant]
     Active Substance: CLENBUTEROL HYDROCHLORIDE
     Indication: PRODUCT USED FOR UNKNOWN INDICATION
     Route: 065
  2. SPINRAZA [Suspect]
     Active Substance: NUSINERSEN
     Indication: SPINAL MUSCULAR ATROPHY
     Route: 037

REACTIONS (11)
  - Intracranial hypotension [Unknown]
  - Pyrexia [Recovered/Resolved]
  - Post lumbar puncture syndrome [Recovered/Resolved]
  - Hypokalaemia [Recovered/Resolved]
  - Procalcitonin increased [Recovered/Resolved]
  - Procedural nausea [Recovered/Resolved]
  - Procedural vomiting [Recovered/Resolved]
  - Acidosis [Recovered/Resolved]
  - Injection site extravasation [Unknown]
  - Meningitis [Recovered/Resolved]
  - C-reactive protein increased [Recovered/Resolved]

NARRATIVE: CASE EVENT DATE: 20190705
